FAERS Safety Report 8028239-7 (Version None)
Quarter: 2012Q1

REPORT INFORMATION
  Report Type: 
  Country: None (occurrence: None)
  Receive Date: 20120106
  Receipt Date: 20120105
  Transmission Date: 20120608
  Serious: Yes (Other)
  Sender: FDA-Public Use
  Company Number: US-ROCHE-1027687

PATIENT
  Sex: Male

DRUGS (2)
  1. ACCUTANE [Suspect]
     Indication: PRODUCT USED FOR UNKNOWN INDICATION
     Dates: start: 19940601, end: 19960701
  2. ACCUTANE [Suspect]
     Dates: start: 20061001, end: 20071001

REACTIONS (2)
  - IRRITABLE BOWEL SYNDROME [None]
  - CROHN'S DISEASE [None]
